FAERS Safety Report 9161473 (Version 1)
Quarter: 2013Q1

REPORT INFORMATION
  Report Type: Spontaneous
  Country: US (occurrence: US)
  Receive Date: 20130313
  Receipt Date: 20130313
  Transmission Date: 20140127
  Serious: No
  Sender: FDA-Public Use
  Company Number: US-009507513-1303USA005370

PATIENT
  Sex: Female

DRUGS (7)
  1. DULERA [Suspect]
     Indication: DYSPNOEA
     Dosage: 100 MCG/5 MCG TAKEN 2 PUFFS TWICE DAILY, BID
     Route: 055
     Dates: start: 201301, end: 2013
  2. DULERA [Suspect]
     Indication: CREPITATIONS
     Dosage: 100 MCG/5 MCG TAKEN 2 PUFFS TWICE DAILY, BID
     Route: 055
     Dates: start: 20130225
  3. INSULIN [Concomitant]
  4. LIPITOR [Concomitant]
  5. ISOSORBIDE [Concomitant]
  6. PLAVIX [Concomitant]
  7. METFORMIN [Concomitant]

REACTIONS (4)
  - Conjunctivitis [Unknown]
  - Malaise [Unknown]
  - Oropharyngeal pain [Unknown]
  - Wrong technique in drug usage process [Unknown]
